FAERS Safety Report 8151435-5 (Version None)
Quarter: 2012Q1

REPORT INFORMATION
  Report Type: 
  Country: None (occurrence: None)
  Receive Date: 20120220
  Receipt Date: 20101208
  Transmission Date: 20120608
  Serious: Yes (Other)
  Sender: FDA-Public Use
  Company Number: US-ROCHE-1038695

PATIENT
  Sex: Female

DRUGS (5)
  1. DOCETAXEL [Suspect]
     Indication: BREAST CANCER
     Route: 065
  2. HERCEPTIN [Suspect]
     Route: 042
  3. CARBOPLATIN [Suspect]
     Indication: BREAST CANCER
     Dosage: 5 OR 6 AUC
     Route: 065
  4. HERCEPTIN [Suspect]
     Indication: BREAST CANCER
     Route: 042
  5. LAPATINIB [Suspect]
     Indication: BREAST CANCER
     Dosage: ON DAYS 1-21
     Route: 065

REACTIONS (17)
  - HYPOCALCAEMIA [None]
  - INFUSION RELATED REACTION [None]
  - ANAEMIA [None]
  - DEHYDRATION [None]
  - ASPARTATE AMINOTRANSFERASE INCREASED [None]
  - INFECTION [None]
  - HYPOKALAEMIA [None]
  - ABDOMINAL PAIN [None]
  - HEADACHE [None]
  - URETERIC OBSTRUCTION [None]
  - VOMITING [None]
  - ASTHENIA [None]
  - NEUTROPENIA [None]
  - DIARRHOEA [None]
  - MYALGIA [None]
  - RASH [None]
  - THROMBOCYTOPENIA [None]
